FAERS Safety Report 21095136 (Version 1)
Quarter: 2022Q3

REPORT INFORMATION
  Report Type: Spontaneous
  Country: GB (occurrence: GB)
  Receive Date: 20220718
  Receipt Date: 20220718
  Transmission Date: 20221027
  Serious: Yes (Other)
  Sender: FDA-Public Use
  Company Number: GB-MHRA-MED-202207140848359120-YZSLG

PATIENT

DRUGS (2)
  1. FLUTICASONE PROPIONATE [Suspect]
     Active Substance: FLUTICASONE PROPIONATE
     Indication: Chronic sinusitis
     Dosage: 400 ?G
     Dates: start: 20220711
  2. VENLAFAXINE CHLORHYDRATE [Concomitant]
     Indication: Depression
     Dosage: UNK
     Dates: start: 20200507

REACTIONS (1)
  - Anxiety [Not Recovered/Not Resolved]
